FAERS Safety Report 7792303-8 (Version None)
Quarter: 2011Q4

REPORT INFORMATION
  Report Type: 
  Country: None (occurrence: None)
  Receive Date: 20111003
  Receipt Date: 20110928
  Transmission Date: 20120403
  Serious: Yes (Death, Other)
  Sender: FDA-Public Use
  Company Number: PHHY2011JP86460

PATIENT
  Age: 30 Year
  Sex: Female

DRUGS (4)
  1. METHYLPREDNISOLONE SODIUM SUCCINATE [Concomitant]
  2. MYCOPHENOLATE MOFETIL [Concomitant]
  3. PREDNISOLONE [Concomitant]
  4. CYCLOSPORINE [Suspect]
     Indication: LUNG TRANSPLANT
     Dosage: UNK
     Dates: start: 20101001

REACTIONS (8)
  - NERVOUS SYSTEM DISORDER [None]
  - ANURIA [None]
  - HAEMATOCHEZIA [None]
  - VENOOCCLUSIVE DISEASE [None]
  - ACUTE RESPIRATORY DISTRESS SYNDROME [None]
  - ANAEMIA [None]
  - CYTOMEGALOVIRUS INFECTION [None]
  - THROMBOTIC MICROANGIOPATHY [None]
